FAERS Safety Report 5066869-5 (Version None)
Quarter: 2006Q3

REPORT INFORMATION
  Report Type: 
  Country: None (occurrence: None)
  Receive Date: 20060724
  Receipt Date: 20050926
  Transmission Date: 20061208
  Serious: Yes (Hospitalization)
  Sender: FDA-Public Use
  Company Number: 6017516

PATIENT
  Age: 61 Year
  Sex: Female

DRUGS (11)
  1. LEVOTHYROXINE SODIUM [Suspect]
     Indication: HYPOTHYROIDISM
     Dosage: SEE IMAGE
     Route: 048
     Dates: start: 20030321, end: 20050709
  2. LEVOTHYROXINE SODIUM [Suspect]
     Indication: HYPOTHYROIDISM
     Dosage: SEE IMAGE
     Route: 048
     Dates: start: 20050717
  3. AMITRIPTYLINE HYDROCHLORIDE [Suspect]
     Indication: BIPOLAR I DISORDER
     Dosage: 25 MG (25 MG, 1 D) ORAL
     Route: 048
     Dates: end: 20050709
  4. TERCIAN (ORAL SOLUTION) (CYAMEMAZINE) [Suspect]
     Indication: ANXIETY
     Dosage: 15 MG (15 MG, 1 D) ORAL
     Route: 048
     Dates: start: 20050608, end: 20050709
  5. SERESTA (50 MG, TABLET) (OXAZEPAM) [Suspect]
     Indication: ANXIETY
     Dosage: 50 MG (50 MG, 1 D) ORAL
     Route: 048
     Dates: end: 20050708
  6. EFFEXOR [Suspect]
     Indication: BIPOLAR I DISORDER
     Dosage: 75 MG (75 MG, 1 D) ORAL
     Route: 048
     Dates: start: 20050609
  7. VALPROATE SODIUM [Suspect]
     Indication: DRUG USE FOR UNKNOWN INDICATION
  8. TAMOXIFEN CITRATE [Concomitant]
  9. PIRACETAM (PIRACETAM) [Concomitant]
  10. LOSARTAN POTASSIUM [Concomitant]
  11. ZOLPIDEM [Concomitant]

REACTIONS (2)
  - CONVULSION [None]
  - HYPERTHYROIDISM [None]
